FAERS Safety Report 15228259 (Version 2)
Quarter: 2018Q3

REPORT INFORMATION
  Report Type: Spontaneous
  Country: US (occurrence: US)
  Receive Date: 20180801
  Receipt Date: 20180828
  Transmission Date: 20181010
  Serious: Yes (Hospitalization, Other)
  Sender: FDA-Public Use
  Company Number: US-FERRINGPH-2018FE04175

PATIENT

DRUGS (1)
  1. SOMATROPIN. [Suspect]
     Active Substance: SOMATROPIN
     Indication: BLOOD GROWTH HORMONE
     Route: 065

REACTIONS (3)
  - Acromegaly [Recovered/Resolved]
  - Drug abuse [Recovered/Resolved]
  - Unmasking of previously unidentified disease [Recovered/Resolved]
